FAERS Safety Report 7889041-X (Version None)
Quarter: 2011Q4

REPORT INFORMATION
  Report Type: 
  Country: None (occurrence: None)
  Receive Date: 20111103
  Receipt Date: 20111026
  Transmission Date: 20120403
  Serious: Yes (Death)
  Sender: FDA-Public Use
  Company Number: US-BAXTER-2011BH033786

PATIENT
  Sex: Male

DRUGS (1)
  1. RECOMBINATE [Suspect]
     Indication: PRODUCT USED FOR UNKNOWN INDICATION
     Route: 042

REACTIONS (1)
  - RESPIRATORY DISTRESS [None]
